FAERS Safety Report 11779786 (Version 2)
Quarter: 2015Q4

REPORT INFORMATION
  Report Type: Report from Study
  Country: GE (occurrence: GE)
  Receive Date: 20151125
  Receipt Date: 20151208
  Transmission Date: 20160304
  Serious: Yes (Hospitalization, Other)
  Sender: FDA-Public Use
  Company Number: GE-GILEAD-2015-0180586

PATIENT
  Age: 48 Year
  Sex: Male
  Weight: 130 kg

DRUGS (3)
  1. INTERFERON [Concomitant]
     Active Substance: INTERFERON
     Indication: CHRONIC HEPATITIS C
     Dosage: UNK
     Dates: start: 20150820, end: 20150903
  2. SOFOSBUVIR [Suspect]
     Active Substance: SOFOSBUVIR
     Indication: CHRONIC HEPATITIS C
     Dosage: 400 MG, UNK
     Route: 048
     Dates: start: 20150820, end: 20150903
  3. RIBAVIRIN. [Concomitant]
     Active Substance: RIBAVIRIN
     Indication: CHRONIC HEPATITIS C
     Dosage: UNK
     Dates: start: 20150820, end: 20150903

REACTIONS (2)
  - Atrial fibrillation [Recovering/Resolving]
  - Cardiac disorder [Recovering/Resolving]

NARRATIVE: CASE EVENT DATE: 20150903
